FAERS Safety Report 15056496 (Version 5)
Quarter: 2019Q3

REPORT INFORMATION
  Report Type: Spontaneous
  Country: NL (occurrence: NL)
  Receive Date: 20180623
  Receipt Date: 20190716
  Transmission Date: 20191004
  Serious: Yes (Life-Threatening, Hospitalization, Other)
  Sender: FDA-Public Use
  Company Number: NL-ACCORD-068655

PATIENT
  Age: 79 Year
  Sex: Male
  Weight: 73 kg

DRUGS (5)
  1. PERINDOPRIL/PERINDOPRIL ERBUMINE [Suspect]
     Active Substance: PERINDOPRIL ERBUMINE
     Indication: HYPERTENSION
     Dosage: 1 X PER DAY 1 PIECE?AT 11/4 ACUTE RESPIRATORY INSUFFICIENCY, TO IC, KEPT IN COMA
     Dates: start: 20170614
  2. LERCANIDIPINE [Suspect]
     Active Substance: LERCANIDIPINE
     Indication: HYPERTENSION
     Dosage: 1 X PER DAY 1 PIECE?STRENGTH: 10 MG?AT 11/4 ACUTE RESPIRATORY INSUFFICIENCY, TO IC, KEPT IN COMA,
     Dates: start: 20170409
  3. MELATONIN [Concomitant]
     Active Substance: MELATONIN
     Dosage: STRENGTH: 0.2 MG
  4. COLCHICINE. [Suspect]
     Active Substance: COLCHICINE
     Indication: CRYSTALLURIA
     Dosage: 1 X PER DAY 1 PIECE ?STRENGTH: 50 MG, 0.5?DOSE: 1 DOSAGE FORM
     Dates: start: 20170614, end: 20170711
  5. ALLOPURINOL. [Suspect]
     Active Substance: ALLOPURINOL
     Indication: BLOOD UREA
     Dosage: 1 X PER DAY 1 PIECE?STRENGTH: 50 MG?AT 11/4 ACUTE RESPIRATORY INSUFFICIENCY, TO IC, KEPT IN COMA
     Dates: start: 20170614, end: 20170711

REACTIONS (6)
  - Thrombocytopenia [Unknown]
  - Leukopenia [Unknown]
  - Multiple organ dysfunction syndrome [Recovered/Resolved]
  - Systemic inflammatory response syndrome [Unknown]
  - Asthenia [Recovered/Resolved]
  - Respiratory failure [Recovered/Resolved]

NARRATIVE: CASE EVENT DATE: 20170711
